FAERS Safety Report 7828697-4 (Version None)
Quarter: 2011Q4

REPORT INFORMATION
  Report Type: 
  Country: None (occurrence: None)
  Receive Date: 20111020
  Receipt Date: 20111008
  Transmission Date: 20120403
  Serious: Yes (Other)
  Sender: FDA-Public Use
  Company Number: US-BAYER-2011-082634

PATIENT
  Age: 27 Year
  Sex: Female
  Weight: 68.027 kg

DRUGS (11)
  1. YASMIN [Suspect]
     Dosage: UNK
     Route: 048
     Dates: start: 20020101, end: 20070101
  2. ZANTAC [Concomitant]
     Dosage: 150 MG, QD
     Route: 048
     Dates: start: 20100623
  3. DEXILANT [Concomitant]
     Dosage: 60 MG, QD
     Dates: start: 20100701
  4. YAZ [Suspect]
     Dosage: UNK
     Route: 048
     Dates: start: 20090101, end: 20100101
  5. CYMBALTA [Concomitant]
     Dosage: 30 MG, QD
     Route: 048
     Dates: start: 20100623
  6. CETIRIZINE HCL [Concomitant]
     Dosage: 10 MG, QD
     Dates: start: 20100701
  7. KAPIDEX [Concomitant]
     Dosage: UNK
     Route: 048
     Dates: start: 20100624
  8. CLARITIN [Concomitant]
     Dosage: UNK UNK, QD
     Route: 048
     Dates: start: 20100624
  9. BROMPHENIRAMINE MALEATE + PSEUDOEPHEDRINE HCL [Concomitant]
     Dosage: UNK
     Dates: start: 20100701
  10. YAZ [Suspect]
     Indication: CONTRACEPTION
     Dosage: UNK
     Route: 048
     Dates: start: 20020101, end: 20070101
  11. DROSPIRENONE AND ETHINYL ESTRADIOL [Suspect]
     Dosage: UNK
     Route: 048
     Dates: start: 20020101, end: 20070101

REACTIONS (8)
  - CHOLECYSTECTOMY [None]
  - GALLBLADDER POLYP [None]
  - CHEST PAIN [None]
  - GASTRITIS [None]
  - GASTROOESOPHAGEAL REFLUX DISEASE [None]
  - CHOLECYSTITIS CHRONIC [None]
  - HEADACHE [None]
  - CHOLESTEROSIS [None]
